FAERS Safety Report 6671266-2 (Version None)
Quarter: 2010Q2

REPORT INFORMATION
  Report Type: 
  Country: None (occurrence: None)
  Receive Date: 20100407
  Receipt Date: 20100317
  Transmission Date: 20101027
  Serious: No
  Sender: FDA-Public Use
  Company Number: US-ELI_LILLY_AND_COMPANY-US201003007202

PATIENT
  Age: 60 Year
  Sex: Female

DRUGS (2)
  1. CYMBALTA [Suspect]
     Dosage: 1 D/F, DAILY (1/D)
  2. TYLENOL                                 /SCH/ [Concomitant]

REACTIONS (1)
  - TRANSAMINASES INCREASED [None]
